FAERS Safety Report 7471419-X (Version None)
Quarter: 2011Q2

REPORT INFORMATION
  Report Type: 
  Country: None (occurrence: None)
  Receive Date: 20110511
  Receipt Date: 20110504
  Transmission Date: 20111010
  Serious: Yes (Other)
  Sender: FDA-Public Use
  Company Number: AU-BIOGENIDEC-2011BI007031

PATIENT
  Age: 57 Year
  Sex: Female

DRUGS (7)
  1. TYSABRI [Suspect]
     Indication: MULTIPLE SCLEROSIS
     Route: 042
     Dates: start: 20090406, end: 20110131
  2. OESTRADIOL [Concomitant]
  3. PROGESTERONE [Concomitant]
  4. VITAMIN D [Concomitant]
     Route: 048
  5. TESTOSTERONE [Concomitant]
  6. AVAPRO [Concomitant]
     Route: 048
  7. BIOESTROGENS [Concomitant]

REACTIONS (1)
  - HAEMOLYTIC ANAEMIA [None]
